FAERS Safety Report 20410715 (Version 1)
Quarter: 2022Q1

REPORT INFORMATION
  Report Type: Spontaneous
  Country: JP (occurrence: JP)
  Receive Date: 20220201
  Receipt Date: 20220201
  Transmission Date: 20220423
  Serious: Yes (Other)
  Sender: FDA-Public Use
  Company Number: JP-PFIZER INC-202101648778

PATIENT
  Age: 70 Year
  Sex: Female

DRUGS (2)
  1. METHOTREXATE SODIUM [Suspect]
     Active Substance: METHOTREXATE SODIUM
     Dosage: UNK
  2. TACROLIMUS [Concomitant]
     Active Substance: TACROLIMUS
     Dosage: UNK

REACTIONS (2)
  - Osteonecrosis [Recovered/Resolved]
  - Epstein Barr virus positive mucocutaneous ulcer [Recovered/Resolved]
